FAERS Safety Report 9564844 (Version 2)
Quarter: 2013Q4

REPORT INFORMATION
  Report Type: Report from Study
  Country: ID (occurrence: ID)
  Receive Date: 20130930
  Receipt Date: 20131221
  Transmission Date: 20140711
  Serious: Yes (Death)
  Sender: FDA-Public Use
  Company Number: PHHY2013ID107948

PATIENT
  Age: 47 Year
  Sex: Female

DRUGS (1)
  1. GLIVEC [Suspect]
     Indication: CHRONIC MYELOID LEUKAEMIA
     Dosage: 100 MG, 1 X 4 TABLETS PER DAY
     Route: 048
     Dates: start: 20120103, end: 201305

REACTIONS (7)
  - Septic shock [Fatal]
  - Blast crisis in myelogenous leukaemia [Fatal]
  - Haemoglobin decreased [Unknown]
  - Platelet count decreased [Unknown]
  - Fluid retention [Unknown]
  - Myalgia [Unknown]
  - Arthralgia [Unknown]
